FAERS Safety Report 4836931-8 (Version None)
Quarter: 2005Q4

REPORT INFORMATION
  Report Type: 
  Country: None (occurrence: None)
  Receive Date: 20051123
  Receipt Date: 20051116
  Transmission Date: 20060501
  Serious: Yes (Hospitalization)
  Sender: FDA-Public Use
  Company Number: ES-MERCK-0511ESP00026

PATIENT
  Age: 74 Year
  Sex: Female

DRUGS (2)
  1. NOROXIN [Suspect]
     Indication: URINARY TRACT INFECTION
     Route: 065
  2. NOROXIN [Suspect]
     Indication: NOSOCOMIAL INFECTION
     Route: 065

REACTIONS (1)
  - CLOSTRIDIUM COLITIS [None]
